FAERS Safety Report 5340808-1 (Version None)
Quarter: 2007Q2

REPORT INFORMATION
  Report Type: 
  Country: None (occurrence: None)
  Receive Date: 20070405
  Receipt Date: 20070125
  Transmission Date: 20071010
  Serious: Yes (Hospitalization)
  Sender: FDA-Public Use
  Company Number: US200701005022

PATIENT
  Age: 55 Year
  Sex: Female

DRUGS (2)
  1. CYMBALTA [Suspect]
     Indication: PAIN
     Dosage: 20 MG, 2/D
     Dates: start: 20070108, end: 20070101
  2. CIPRO [Concomitant]

REACTIONS (2)
  - CHILLS [None]
  - PYREXIA [None]
